FAERS Safety Report 15044875 (Version 3)
Quarter: 2018Q4

REPORT INFORMATION
  Report Type: Report from Study
  Country: BR (occurrence: BR)
  Receive Date: 20180621
  Receipt Date: 20181025
  Transmission Date: 20190204
  Serious: Yes (Other)
  Sender: FDA-Public Use
  Company Number: PHHY2018BR021897

PATIENT
  Age: 36 Year
  Sex: Male
  Weight: 85 kg

DRUGS (6)
  1. PREGABALIN. [Concomitant]
     Active Substance: PREGABALIN
     Indication: FIBROMYALGIA
     Dosage: 75 MG, QD
     Route: 048
  2. HUMIRA [Suspect]
     Active Substance: ADALIMUMAB
     Indication: PRODUCT USED FOR UNKNOWN INDICATION
     Route: 065
  3. COSENTYX [Suspect]
     Active Substance: SECUKINUMAB
     Dosage: UNK
     Route: 065
     Dates: start: 20181012
  4. COSENTYX [Suspect]
     Active Substance: SECUKINUMAB
     Dosage: UNK
     Route: 065
     Dates: start: 201806
  5. CYMBI [Concomitant]
     Indication: FIBROMYALGIA
     Dosage: 30 MG, QD
     Route: 048
  6. COSENTYX [Suspect]
     Active Substance: SECUKINUMAB
     Indication: ANKYLOSING SPONDYLITIS
     Dosage: 150 MG, QMO
     Route: 058
     Dates: start: 20180314

REACTIONS (21)
  - Arthralgia [Unknown]
  - Genital candidiasis [Recovering/Resolving]
  - Irritability [Unknown]
  - Tremor [Unknown]
  - Sexual dysfunction [Recovering/Resolving]
  - Eczema [Unknown]
  - Ear infection [Recovering/Resolving]
  - Hypersensitivity [Recovered/Resolved]
  - Eye disorder [Unknown]
  - Decreased immune responsiveness [Unknown]
  - Pruritus generalised [Recovering/Resolving]
  - Blood immunoglobulin E abnormal [Recovered/Resolved]
  - Pruritus [Recovering/Resolving]
  - Ear pruritus [Recovering/Resolving]
  - Blepharospasm [Recovering/Resolving]
  - Rheumatic disorder [Unknown]
  - Ear discomfort [Recovering/Resolving]
  - Scratch [Unknown]
  - Ear pain [Unknown]
  - Myalgia [Unknown]
  - Sleep disorder [Recovering/Resolving]

NARRATIVE: CASE EVENT DATE: 20180515
